FAERS Safety Report 19990583 (Version 1)
Quarter: 2021Q4

REPORT INFORMATION
  Report Type: Spontaneous
  Country: US (occurrence: US)
  Receive Date: 20211023
  Receipt Date: 20211023
  Transmission Date: 20220303
  Serious: Yes (Other)
  Sender: FDA-Public Use
  Company Number: None

PATIENT
  Age: 37 Year
  Sex: Female
  Weight: 65.25 kg

DRUGS (2)
  1. NITAZOXANIDE [Suspect]
     Active Substance: NITAZOXANIDE
     Indication: Sapovirus test positive
     Dosage: ?          QUANTITY:28 TABLET(S);
     Route: 048
     Dates: start: 20211008, end: 20211022
  2. NITAZOXANIDE [Suspect]
     Active Substance: NITAZOXANIDE
     Indication: Viral infection

REACTIONS (1)
  - Alopecia [None]

NARRATIVE: CASE EVENT DATE: 20211023
